FAERS Safety Report 16597122 (Version 1)
Quarter: 2019Q3

REPORT INFORMATION
  Report Type: Spontaneous
  Country: US (occurrence: US)
  Receive Date: 20190719
  Receipt Date: 20190719
  Transmission Date: 20191004
  Serious: Yes (Other)
  Sender: FDA-Public Use
  Company Number: US-MYLANLABS-2019M1066874

PATIENT
  Age: 67 Year
  Sex: Male

DRUGS (2)
  1. GEMCITABINE. [Suspect]
     Active Substance: GEMCITABINE
     Indication: ADENOCARCINOMA PANCREAS
     Route: 050
  2. CAPECITABINE. [Suspect]
     Active Substance: CAPECITABINE
     Indication: ADENOCARCINOMA PANCREAS
     Route: 065

REACTIONS (2)
  - Pancytopenia [Unknown]
  - Lupus-like syndrome [Recovered/Resolved with Sequelae]
